FAERS Safety Report 12393824 (Version 2)
Quarter: 2016Q3

REPORT INFORMATION
  Report Type: Spontaneous
  Country: US (occurrence: US)
  Receive Date: 20160523
  Receipt Date: 20160713
  Transmission Date: 20161109
  Serious: No
  Sender: FDA-Public Use
  Company Number: US-LUNDBECK-DKLU2012497

PATIENT
  Sex: Male

DRUGS (2)
  1. MEMORY MEDICATION [Suspect]
     Active Substance: UNSPECIFIED INGREDIENT
     Indication: MEMORY IMPAIRMENT
     Route: 065
  2. NORTHERA [Suspect]
     Active Substance: DROXIDOPA
     Indication: DIZZINESS
     Route: 065
     Dates: start: 20160324, end: 20160411

REACTIONS (1)
  - Dizziness [Unknown]
